FAERS Safety Report 7241898-1 (Version None)
Quarter: 2011Q1

REPORT INFORMATION
  Report Type: 
  Country: None (occurrence: None)
  Receive Date: 20110124
  Receipt Date: 20110114
  Transmission Date: 20110831
  Serious: Yes (Hospitalization)
  Sender: FDA-Public Use
  Company Number: JP-ASTRAZENECA-2010SE59892

PATIENT
  Age: 77 Year
  Sex: Female
  Weight: 45 kg

DRUGS (12)
  1. GASMOTIN [Concomitant]
     Indication: GASTROENTERITIS
     Route: 048
     Dates: end: 20101214
  2. GASSAAL [Concomitant]
     Indication: IRRITABLE BOWEL SYNDROME
     Route: 048
     Dates: end: 20101214
  3. HI-Z [Concomitant]
     Indication: DYSLIPIDAEMIA
     Route: 048
     Dates: end: 20101214
  4. HERBESSER R [Concomitant]
     Indication: ANGINA PECTORIS
     Route: 048
  5. MOBIC [Concomitant]
     Indication: LUMBAR SPINAL STENOSIS
     Route: 048
     Dates: start: 20101116, end: 20101214
  6. CRESTOR [Suspect]
     Indication: DYSLIPIDAEMIA
     Route: 048
     Dates: start: 20101105, end: 20101213
  7. NIJITSU-TO [Concomitant]
     Indication: LUMBAR SPINAL STENOSIS
     Route: 048
     Dates: start: 20101116, end: 20101214
  8. SORENTMIN [Concomitant]
     Indication: INSOMNIA
     Route: 048
     Dates: end: 20101213
  9. MECOBALAMIN [Concomitant]
     Indication: NEUROPATHY PERIPHERAL
     Route: 048
     Dates: end: 20101214
  10. LAC-B [Concomitant]
     Indication: GASTROENTERITIS
     Route: 048
     Dates: end: 20101214
  11. KAMAG G [Concomitant]
     Indication: CONSTIPATION
     Route: 048
     Dates: end: 20101214
  12. BIOFERMIN [Concomitant]
     Indication: GASTROENTERITIS
     Route: 048
     Dates: end: 20101214

REACTIONS (1)
  - HEPATIC FUNCTION ABNORMAL [None]
